FAERS Safety Report 8170455-8 (Version None)
Quarter: 2012Q1

REPORT INFORMATION
  Report Type: 
  Country: None (occurrence: None)
  Receive Date: 20120110
  Receipt Date: 20110419
  Transmission Date: 20120608
  Serious: Yes (Other)
  Sender: FDA-Public Use
  Company Number: M-11-009

PATIENT
  Sex: Female

DRUGS (1)
  1. DOXYCYCLINE [Suspect]
     Dosage: ORAL (047)
     Route: 048

REACTIONS (4)
  - INFLAMMATION [None]
  - SKIN IRRITATION [None]
  - ROSACEA [None]
  - FEELING HOT [None]
